FAERS Safety Report 17367860 (Version 1)
Quarter: 2020Q1

REPORT INFORMATION
  Report Type: Spontaneous
  Country: FR (occurrence: FR)
  Receive Date: 20200204
  Receipt Date: 20200204
  Transmission Date: 20200409
  Serious: Yes (Life-Threatening, Other)
  Sender: FDA-Public Use
  Company Number: FR-SA-2020SA029331

PATIENT
  Age: 66 Year
  Sex: Male
  Weight: 175 kg

DRUGS (3)
  1. ACUPAN [Concomitant]
     Active Substance: NEFOPAM HYDROCHLORIDE
     Indication: PAIN
     Dosage: UNK
     Dates: start: 20191223, end: 20191227
  2. LOVENOX [Suspect]
     Active Substance: ENOXAPARIN SODIUM
     Indication: THROMBOSIS PROPHYLAXIS
     Dosage: 0.4 ML, QD
     Route: 058
     Dates: start: 20191223
  3. CALCIPARINE [Suspect]
     Active Substance: HEPARIN CALCIUM
     Indication: PRODUCT ADMINISTRATION ERROR
     Dosage: 1 DF, QD
     Route: 042
     Dates: start: 20191227, end: 20191227

REACTIONS (5)
  - Product administration error [Unknown]
  - Pericardial effusion [Recovered/Resolved]
  - Accidental overdose [Unknown]
  - Product storage error [Unknown]
  - Product appearance confusion [Unknown]

NARRATIVE: CASE EVENT DATE: 20191227
